FAERS Safety Report 14537017 (Version 2)
Quarter: 2018Q1

REPORT INFORMATION
  Report Type: Spontaneous
  Country: JP (occurrence: JP)
  Receive Date: 20180215
  Receipt Date: 20180328
  Transmission Date: 20180509
  Serious: Yes (Life-Threatening, Hospitalization, Other)
  Sender: FDA-Public Use
  Company Number: JP-REGENERON PHARMACEUTICALS, INC.-2018-14168

PATIENT

DRUGS (13)
  1. EYLEA [Suspect]
     Active Substance: AFLIBERCEPT
     Dosage: 0.05 ML, ONCE, OD
     Route: 031
     Dates: start: 20171026, end: 20171026
  2. EYLEA [Suspect]
     Active Substance: AFLIBERCEPT
     Dosage: 0.05 ML, ONCE, OS
     Route: 031
     Dates: start: 20170427, end: 20170427
  3. EYLEA [Suspect]
     Active Substance: AFLIBERCEPT
     Dosage: 0.05 ML, ONCE, OD
     Route: 031
     Dates: start: 20170829, end: 20170829
  4. EYLEA [Suspect]
     Active Substance: AFLIBERCEPT
     Dosage: 0.05 ML, ONCE, OS
     Route: 031
     Dates: start: 20170921, end: 20170921
  5. EYLEA [Suspect]
     Active Substance: AFLIBERCEPT
     Indication: DIABETIC RETINAL OEDEMA
     Dosage: 0.05 ML, ONCE, OD
     Route: 031
     Dates: start: 20170418, end: 20170418
  6. EYLEA [Suspect]
     Active Substance: AFLIBERCEPT
     Dosage: 0.05 ML, ONCE, OD
     Route: 031
     Dates: start: 20170727, end: 20170727
  7. EYLEA [Suspect]
     Active Substance: AFLIBERCEPT
     Dosage: 0.05 ML, ONCE, OS
     Route: 031
     Dates: start: 20170824, end: 20170824
  8. EYLEA [Suspect]
     Active Substance: AFLIBERCEPT
     Dosage: 0.05 ML, ONCE, OD
     Route: 031
     Dates: start: 20170926, end: 20170926
  9. EYLEA [Suspect]
     Active Substance: AFLIBERCEPT
     Dosage: 0.05 ML, ONCE, OS
     Route: 031
     Dates: start: 20170516, end: 20170516
  10. EYLEA [Suspect]
     Active Substance: AFLIBERCEPT
     Dosage: 0.05 ML, ONCE, OD
     Route: 031
     Dates: start: 20171212, end: 20171212
  11. EYLEA [Suspect]
     Active Substance: AFLIBERCEPT
     Dosage: 0.05 ML, ONCE, OD
     Route: 031
     Dates: start: 20170530, end: 20170530
  12. EYLEA [Suspect]
     Active Substance: AFLIBERCEPT
     Dosage: 0.05 ML, ONCE, OS
     Route: 031
     Dates: start: 20171024, end: 20171024
  13. EYLEA [Suspect]
     Active Substance: AFLIBERCEPT
     Dosage: 0.05 ML, ONCE, OS
     Route: 031
     Dates: start: 20170720, end: 20170720

REACTIONS (3)
  - Myocardial infarction [Recovered/Resolved]
  - Cardiac failure [Unknown]
  - Diabetic retinal oedema [Unknown]

NARRATIVE: CASE EVENT DATE: 20171214
